FAERS Safety Report 9539016 (Version 1)
Quarter: 2013Q2

REPORT INFORMATION
  Report Type: Spontaneous
  Country: US (occurrence: None)
  Receive Date: 20130507
  Receipt Date: 20130507
  Transmission Date: 20140414
  Serious: Yes (Other)
  Sender: FDA-Public Use
  Company Number: PHEH2012US023923

PATIENT
  Age: 68 Year
  Sex: Female

DRUGS (7)
  1. TASIGNA (AMN107) CAPSULE [Suspect]
     Indication: CHRONIC MYELOID LEUKAEMIA
     Route: 048
     Dates: start: 20121130
  2. HUMALOG (INSULIN LISPRO) [Concomitant]
  3. POTASSIUM [Concomitant]
  4. GABAPENTIN [Concomitant]
  5. LOSARTAN [Concomitant]
  6. BISOPROLOL [Concomitant]
  7. METFORMIN [Concomitant]

REACTIONS (1)
  - Blood glucose increased [None]
